FAERS Safety Report 13082718 (Version 3)
Quarter: 2017Q1

REPORT INFORMATION
  Report Type: Spontaneous
  Country: MA (occurrence: MA)
  Receive Date: 20170103
  Receipt Date: 20170331
  Transmission Date: 20170428
  Serious: No
  Sender: FDA-Public Use
  Company Number: MA-BIOGEN-2016BI00336738

PATIENT
  Sex: Male
  Weight: 70 kg

DRUGS (2)
  1. LITHIUM. [Concomitant]
     Active Substance: LITHIUM
     Indication: PRODUCT USED FOR UNKNOWN INDICATION
     Route: 065
  2. TYSABRI [Suspect]
     Active Substance: NATALIZUMAB
     Indication: RELAPSING-REMITTING MULTIPLE SCLEROSIS
     Route: 042
     Dates: start: 20151001, end: 20161205

REACTIONS (3)
  - Multiple sclerosis relapse [Unknown]
  - Neutralising antibodies positive [Unknown]
  - Prescribed underdose [Recovered/Resolved]
